FAERS Safety Report 9630338 (Version 1)
Quarter: 2013Q4

REPORT INFORMATION
  Report Type: Spontaneous
  Country: CA (occurrence: CA)
  Receive Date: 20131018
  Receipt Date: 20131018
  Transmission Date: 20140711
  Serious: Yes (Hospitalization)
  Sender: FDA-Public Use
  Company Number: CA-ROCHE-1290097

PATIENT
  Age: 10 Year
  Sex: Male
  Weight: 30 kg

DRUGS (10)
  1. MYCOPHENOLATE MOFETIL [Suspect]
     Indication: PRODUCT USED FOR UNKNOWN INDICATION
     Dosage: THERAPY DURATION: 158 DAYS
     Route: 048
  2. ACETAZOLAMIDE [Concomitant]
     Route: 065
  3. CLOBAZAM [Concomitant]
     Route: 065
  4. MAGNESIUM GLUCONATE [Concomitant]
     Route: 065
  5. OMEPRAZOLE [Concomitant]
  6. PREDNISONE [Concomitant]
  7. SODIUM BICARBONATE [Concomitant]
     Route: 065
  8. SULFAMETHOXAZOLE/TRIMETHOPRIM [Concomitant]
     Route: 065
  9. TACROLIMUS [Concomitant]
     Route: 065
  10. VALGANCICLOVIR [Concomitant]
     Route: 065

REACTIONS (3)
  - Colitis [Unknown]
  - Enteritis [Unknown]
  - Peptic ulcer [Unknown]
